FAERS Safety Report 8533498-8 (Version None)
Quarter: 2012Q3

REPORT INFORMATION
  Report Type: 
  Country: None (occurrence: None)
  Receive Date: 20120724
  Receipt Date: 20120711
  Transmission Date: 20120928
  Serious: Yes (Hospitalization, Other)
  Sender: FDA-Public Use
  Company Number: ZA-ELI_LILLY_AND_COMPANY-ZA201207006826

PATIENT
  Sex: Female

DRUGS (8)
  1. HUMALOG MIX 50/50 [Suspect]
     Dosage: 18 U, QD
     Route: 058
  2. HUMALOG MIX 50/50 [Suspect]
     Dosage: UNK, QD
  3. ATORVASTATIN CALCIUM [Concomitant]
     Indication: BLOOD CHOLESTEROL ABNORMAL
     Dosage: 1 DF, QD
     Route: 048
  4. HUMALOG MIX 50/50 [Suspect]
     Dosage: 20 U, EACH EVENING
     Route: 058
  5. ENAP [Concomitant]
     Indication: BLOOD PRESSURE ABNORMAL
     Dosage: 1 DF, BID
     Route: 048
  6. ACETYLSALICYLIC ACID SRT [Concomitant]
     Indication: ANTICOAGULANT THERAPY
     Dosage: 1 DF, QD
     Route: 048
  7. PAROXETINE HCL [Concomitant]
     Indication: DEPRESSION
     Dosage: 1 DF, QD
     Route: 048
  8. HUMALOG MIX 50/50 [Suspect]
     Indication: DIABETES MELLITUS
     Dosage: 16 U, EACH MORNING
     Route: 058

REACTIONS (1)
  - CEREBROVASCULAR ACCIDENT [None]
